FAERS Safety Report 4774878-6 (Version None)
Quarter: 2005Q3

REPORT INFORMATION
  Report Type: 
  Country: None (occurrence: None)
  Receive Date: 20050919
  Receipt Date: 20050902
  Transmission Date: 20060218
  Serious: Yes (Hospitalization)
  Sender: FDA-Public Use
  Company Number: CIP05002076

PATIENT
  Age: 61 Year
  Sex: Male
  Weight: 63.6 kg

DRUGS (3)
  1. ASACOL [Suspect]
     Indication: CROHN'S DISEASE
     Dosage: 1000 MG DAILY, ORAL; SEE IMAGE
     Route: 048
     Dates: start: 20000831
  2. ASACOL [Suspect]
     Indication: CROHN'S DISEASE
     Dosage: 1000 MG DAILY, ORAL; SEE IMAGE
     Route: 048
     Dates: start: 20010419
  3. ANTIHYPERTENSIVES [Concomitant]

REACTIONS (13)
  - ARTHRALGIA [None]
  - BLOOD ALKALINE PHOSPHATASE INCREASED [None]
  - BLOOD PRESSURE DIASTOLIC INCREASED [None]
  - COLONIC STENOSIS [None]
  - CROHN'S DISEASE [None]
  - DIARRHOEA [None]
  - DRUG INEFFECTIVE [None]
  - FISTULA [None]
  - HEPATIC FUNCTION ABNORMAL [None]
  - PLATELET COUNT INCREASED [None]
  - PROTEIN TOTAL DECREASED [None]
  - PRURITUS [None]
  - PYREXIA [None]
